FAERS Safety Report 8297283-7 (Version None)
Quarter: 2012Q2

REPORT INFORMATION
  Report Type: 
  Country: None (occurrence: None)
  Receive Date: 20120419
  Receipt Date: 20120409
  Transmission Date: 20120825
  Serious: Yes (Other)
  Sender: FDA-Public Use
  Company Number: CA-JNJFOC-20120404345

PATIENT
  Sex: Female

DRUGS (2)
  1. REMICADE [Suspect]
     Indication: CROHN'S DISEASE
     Route: 042
     Dates: start: 20120401
  2. REMICADE [Suspect]
     Dosage: EVERY 0, 2 AND 6 WEEKS THEN EVERY 8 WEEKS
     Route: 042
     Dates: start: 20101201

REACTIONS (1)
  - SURGERY [None]
